FAERS Safety Report 25952435 (Version 1)
Quarter: 2025Q4

REPORT INFORMATION
  Report Type: Spontaneous
  Country: GB (occurrence: GB)
  Receive Date: 20251023
  Receipt Date: 20251023
  Transmission Date: 20260118
  Serious: Yes (Death, Life-Threatening, Hospitalization, Other)
  Sender: BRACCO
  Company Number: None

PATIENT
  Age: 28 Year
  Sex: Female

DRUGS (1)
  1. IOMERON [Suspect]
     Active Substance: IOMEPROL
     Indication: Computerised tomogram
     Dosage: 75 ML, SINGLE
     Route: 042
     Dates: start: 20251011, end: 20251011

REACTIONS (7)
  - Vomiting [Fatal]
  - Erythema [Fatal]
  - Peripheral swelling [Fatal]
  - Syncope [Fatal]
  - Unresponsive to stimuli [Fatal]
  - Pulmonary oedema [Not Recovered/Not Resolved]
  - Hypersensitivity [Fatal]

NARRATIVE: CASE EVENT DATE: 20251011
